FAERS Safety Report 12137694 (Version 1)
Quarter: 2016Q1

REPORT INFORMATION
  Report Type: Spontaneous
  Country: NL (occurrence: US)
  Receive Date: 20160302
  Receipt Date: 20160302
  Transmission Date: 20160526
  Serious: No
  Sender: FDA-Public Use
  Company Number: NL-ACTAVIS-2015-27669

PATIENT
  Age: 65 Year
  Sex: Female

DRUGS (1)
  1. KENTERA (WATSON LABORATORIES) [Suspect]
     Active Substance: OXYBUTYNIN
     Indication: HYPERTONIC BLADDER
     Dosage: 3.9 MG, Q24H
     Route: 062

REACTIONS (3)
  - Urinary incontinence [Unknown]
  - Drug ineffective [Unknown]
  - Pruritus [Unknown]
